FAERS Safety Report 6310098-1 (Version None)
Quarter: 2009Q3

REPORT INFORMATION
  Report Type: 
  Country: None (occurrence: None)
  Receive Date: 20090814
  Receipt Date: 20090806
  Transmission Date: 20100115
  Serious: Yes (Other)
  Sender: FDA-Public Use
  Company Number: JP-JNJFOC-20090803012

PATIENT
  Age: 56 Year
  Sex: Male

DRUGS (1)
  1. RISPERDAL [Suspect]
     Indication: DELIRIUM
     Route: 048

REACTIONS (2)
  - HYPOGLYCAEMIA [None]
  - OFF LABEL USE [None]
